FAERS Safety Report 8596298-9 (Version None)
Quarter: 2012Q3

REPORT INFORMATION
  Report Type: 
  Country: None (occurrence: None)
  Receive Date: 20120815
  Receipt Date: 20120808
  Transmission Date: 20120928
  Serious: Yes (Hospitalization)
  Sender: FDA-Public Use
  Company Number: US-CELGENEUS-163-50794-12071749

PATIENT
  Age: 71 Year
  Weight: 118.2 kg

DRUGS (7)
  1. ENTINOSTAT [Suspect]
     Dosage: 8 MILLIGRAM
     Route: 048
     Dates: start: 20120628, end: 20120705
  2. LASIX [Concomitant]
     Dosage: 40 MILLIGRAM
     Route: 065
  3. HYDROXYUREA [Concomitant]
     Dosage: 1500 MILLIGRAM
     Route: 065
  4. ARIMIDEX [Concomitant]
     Dosage: 1 MILLIGRAM
     Route: 065
  5. AVAPRO [Concomitant]
     Dosage: 150 MILLIGRAM
     Route: 065
  6. VIDAZA [Suspect]
     Dosage: 11.7 MILLIGRAM
     Route: 058
     Dates: start: 20120619, end: 20120628
  7. RED BLOOD CELLS [Concomitant]
     Route: 041

REACTIONS (1)
  - OEDEMA PERIPHERAL [None]
